FAERS Safety Report 20482476 (Version 1)
Quarter: 2022Q1

REPORT INFORMATION
  Report Type: Spontaneous
  Country: UA (occurrence: UA)
  Receive Date: 20220217
  Receipt Date: 20220217
  Transmission Date: 20220423
  Serious: Yes (Other)
  Sender: FDA-Public Use
  Company Number: UA-BAYER-2022A022670

PATIENT
  Age: 75 Year
  Sex: Female

DRUGS (2)
  1. XARELTO [Interacting]
     Active Substance: RIVAROXABAN
     Indication: Atrial fibrillation
     Dosage: 20 MG, QD
     Route: 048
  2. PHENOBARBITAL [Concomitant]
     Active Substance: PHENOBARBITAL
     Indication: Insomnia

REACTIONS (2)
  - Ischaemic stroke [Unknown]
  - Labelled drug-drug interaction medication error [Unknown]
